FAERS Safety Report 19231814 (Version 2)
Quarter: 2021Q2

REPORT INFORMATION
  Report Type: Spontaneous
  Country: IT (occurrence: IT)
  Receive Date: 20210507
  Receipt Date: 20210510
  Transmission Date: 20210717
  Serious: No
  Sender: FDA-Public Use
  Company Number: IT-PFIZER INC-2021473694

PATIENT
  Age: 55 Year
  Sex: Male

DRUGS (3)
  1. LITHIUM SULFATE [Suspect]
     Active Substance: LITHIUM SULFATE
     Indication: BIPOLAR DISORDER
     Dosage: 166 MG ONCE A DAY (10 TABLETS)
     Route: 048
  2. LORAZEPAM. [Suspect]
     Active Substance: LORAZEPAM
     Dosage: 25 MG (10 TABLETS OF 2.5 MG)
  3. QUETIAPINE. [Suspect]
     Active Substance: QUETIAPINE
     Dosage: 300 MG (10 TABLETS)

REACTIONS (1)
  - Intentional overdose [Unknown]
